FAERS Safety Report 21364529 (Version 2)
Quarter: 2022Q4

REPORT INFORMATION
  Report Type: Report from Study
  Country: CA (occurrence: CA)
  Receive Date: 20220922
  Receipt Date: 20221229
  Transmission Date: 20230113
  Serious: Yes (Hospitalization)
  Sender: FDA-Public Use
  Company Number: CA-JNJFOC-20220941851

PATIENT
  Age: 74 Year
  Sex: Male

DRUGS (2)
  1. STELARA [Suspect]
     Active Substance: USTEKINUMAB
     Indication: Colitis ulcerative
     Dosage: ON 19-SEP-2022, RECEIVED 6TH USTEKINUMAB INJECTION OF 90MG AND PARTIAL MAYO SURVEY COMPLETED.
     Route: 058
     Dates: start: 20211116
  2. STELARA [Suspect]
     Active Substance: USTEKINUMAB
     Route: 058

REACTIONS (4)
  - Crohn^s disease [Not Recovered/Not Resolved]
  - Constipation [Unknown]
  - Blood urine present [Unknown]
  - Off label use [Unknown]

NARRATIVE: CASE EVENT DATE: 20221101
